FAERS Safety Report 5726120 (Version 11)
Quarter: 2013Q1

REPORT INFORMATION
  Report Type: Report from Study
  Country: JP (occurrence: JP)
  Receive Date: 20040414
  Receipt Date: 20130221
  Transmission Date: 20140127
  Serious: Yes (Hospitalization)
  Sender: FDA-Public Use
  Company Number: JP-ABBOTT-04P-087-0256455-00

PATIENT
  Age: 33 Year
  Sex: Male

DRUGS (27)
  1. KALETRA [Suspect]
     Indication: HIV INFECTION
     Route: 048
     Dates: start: 20021123, end: 20021126
  2. KALETRA [Suspect]
     Route: 048
     Dates: start: 20040206, end: 20061119
  3. KALETRA TABLETS 200MG/50MG [Suspect]
     Indication: HIV INFECTION
     Route: 048
     Dates: start: 20061120
  4. DIDANOSINE [Suspect]
     Indication: HIV INFECTION
     Route: 048
     Dates: start: 20021123, end: 20040205
  5. ABACAVIR [Suspect]
     Indication: HIV INFECTION
     Route: 048
     Dates: start: 20021123, end: 20040205
  6. EFAVIRENZ [Suspect]
     Indication: HIV INFECTION
     Route: 048
     Dates: start: 20021127, end: 20040205
  7. STAVUDINE [Suspect]
     Indication: HIV INFECTION
     Route: 048
     Dates: start: 20040206, end: 20040506
  8. STAVUDINE [Suspect]
     Route: 048
     Dates: start: 20040507, end: 20050106
  9. TENOFOVIR [Suspect]
     Indication: HIV INFECTION
     Route: 048
     Dates: start: 20050107, end: 20070819
  10. ZIDOVUDINE [Suspect]
     Indication: HIV INFECTION
     Route: 048
     Dates: start: 20050117, end: 20051007
  11. LAMIVUDINE [Concomitant]
     Indication: HIV INFECTION
     Route: 048
     Dates: start: 20040206, end: 20070819
  12. GANCICLOVIR [Concomitant]
     Indication: CYTOMEGALOVIRUS INFECTION
     Route: 042
     Dates: start: 20021021, end: 20021105
  13. GANCICLOVIR [Concomitant]
     Indication: OESOPHAGITIS
     Route: 048
     Dates: start: 20021203, end: 20030331
  14. GANCICLOVIR [Concomitant]
     Dates: start: 20030404, end: 20040206
  15. AZITHROMYCIN DIHYDRATE [Concomitant]
     Indication: MYCOBACTERIUM AVIUM COMPLEX INFECTION
     Route: 048
     Dates: start: 20021108, end: 20030606
  16. FOSCARNET SODIUM [Concomitant]
     Indication: CYTOMEGALOVIRUS INFECTION
     Route: 042
     Dates: start: 20021106, end: 20021110
  17. FOSCARNET SODIUM [Concomitant]
     Indication: OESOPHAGITIS
     Route: 042
     Dates: start: 20021111, end: 20021118
  18. SULFAMETHOXAZOLE W/TRIMETHOPRIM [Concomitant]
     Indication: ANTIFUNGAL PROPHYLAXIS
     Route: 048
     Dates: start: 20021011, end: 20021022
  19. FILGRASTIM [Concomitant]
     Indication: WHITE BLOOD CELL COUNT DECREASED
     Dates: start: 20021105, end: 20021108
  20. PENTAMIDINE ISETHIONATE [Concomitant]
     Indication: ANTIFUNGAL PROPHYLAXIS
     Route: 055
     Dates: start: 20021106, end: 20040604
  21. CEFMETAZOLE SODIUM [Concomitant]
     Indication: APPENDICITIS
     Dates: start: 20030311, end: 20030314
  22. FLUCONAZOLE [Concomitant]
     Indication: ORAL CANDIDIASIS
     Dates: start: 20021008, end: 20021012
  23. FLUCONAZOLE [Concomitant]
     Indication: OESOPHAGEAL CANDIDIASIS
     Dates: start: 20021111, end: 20021117
  24. EMTRICITABINE W/TENOFOVIR [Concomitant]
     Indication: HIV INFECTION
     Route: 048
     Dates: start: 20070820
  25. CEFCAPENE PIVOXIL HYDROCHLORIDE [Concomitant]
     Indication: ARTERIOSCLEROSIS
     Dates: start: 20090327
  26. LOXOPROFEN SODIUM [Concomitant]
     Indication: ARTERIOSCLEROSIS
     Dates: start: 20090327
  27. TEPRENONE [Concomitant]
     Indication: ARTERIOSCLEROSIS
     Dates: start: 20090327

REACTIONS (11)
  - Appendicitis [Recovered/Resolved]
  - Herpes zoster [Recovered/Resolved]
  - Feeling cold [Recovered/Resolved]
  - Dizziness [Recovered/Resolved]
  - Bradycardia [Recovering/Resolving]
  - Dizziness [Recovering/Resolving]
  - Gamma-glutamyltransferase increased [Not Recovered/Not Resolved]
  - Amylase increased [Recovering/Resolving]
  - Blood triglycerides increased [Recovering/Resolving]
  - Weight decreased [Recovering/Resolving]
  - Gastric ulcer [Recovering/Resolving]
